FAERS Safety Report 9168149 (Version 5)
Quarter: 2013Q2

REPORT INFORMATION
  Report Type: Spontaneous
  Country: SE (occurrence: SE)
  Receive Date: 20130318
  Receipt Date: 20130425
  Transmission Date: 20140414
  Serious: Yes (Hospitalization, Other)
  Sender: FDA-Public Use
  Company Number: SE-BAYER-2013-027777

PATIENT
  Age: 21 Year
  Sex: Female

DRUGS (2)
  1. MIRENA [Suspect]
     Indication: DYSMENORRHOEA
     Dosage: UNK
     Route: 015
     Dates: start: 20130225, end: 20130225
  2. IPREN [Concomitant]
     Route: 048

REACTIONS (6)
  - Procedural pain [None]
  - Syncope [None]
  - Device difficult to use [None]
  - Complication of device insertion [None]
  - Convulsion [None]
  - Anaphylactic shock [None]
